FAERS Safety Report 15065575 (Version 4)
Quarter: 2018Q4

REPORT INFORMATION
  Report Type: Other
  Country: DE (occurrence: DE)
  Receive Date: 20180626
  Receipt Date: 20181108
  Transmission Date: 20190204
  Serious: Yes (Congenital Anomaly, Other)
  Sender: FDA-Public Use
  Company Number: DE-MERCK KGAA-2049941

PATIENT
  Age: 1 Day
  Sex: Male
  Weight: 3.37 kg

DRUGS (7)
  1. METFORMIN HYDROCHLORIDE. [Suspect]
     Active Substance: METFORMIN HYDROCHLORIDE
  2. INSULIN [Suspect]
     Active Substance: INSULIN NOS
  3. METHYLDOPA. [Suspect]
     Active Substance: METHYLDOPA
  4. METOPROLOL. [Suspect]
     Active Substance: METOPROLOL
  5. RAMIPRIL. [Suspect]
     Active Substance: RAMIPRIL
  6. SITAGLIPTIN PHOSPHATE [Suspect]
     Active Substance: SITAGLIPTIN PHOSPHATE
  7. EUTHYROX [Suspect]
     Active Substance: LEVOTHYROXINE SODIUM
     Indication: AUTOIMMUNE THYROIDITIS

REACTIONS (5)
  - Atrial septal defect [Unknown]
  - Foetal exposure during pregnancy [Recovered/Resolved]
  - Large for dates baby [Recovering/Resolving]
  - Diabetic foetopathy [Recovered/Resolved]
  - Premature baby [Unknown]

NARRATIVE: CASE EVENT DATE: 20131113
